FAERS Safety Report 15674500 (Version 2)
Quarter: 2019Q3

REPORT INFORMATION
  Report Type: Spontaneous
  Country: US (occurrence: US)
  Receive Date: 20181130
  Receipt Date: 20190802
  Transmission Date: 20191004
  Serious: Yes (Other)
  Sender: FDA-Public Use
  Company Number: US-PFIZER INC-2018488979

PATIENT
  Age: 78 Year
  Sex: Female

DRUGS (1)
  1. IBRANCE [Suspect]
     Active Substance: PALBOCICLIB
     Indication: METASTATIC NEOPLASM
     Dosage: UNK
     Dates: start: 201808, end: 201808

REACTIONS (1)
  - Liver injury [Recovered/Resolved]

NARRATIVE: CASE EVENT DATE: 201808
